FAERS Safety Report 17896474 (Version 3)
Quarter: 2020Q4

REPORT INFORMATION
  Report Type: Spontaneous
  Country: US (occurrence: US)
  Receive Date: 20200615
  Receipt Date: 20201105
  Transmission Date: 20210113
  Serious: No
  Sender: FDA-Public Use
  Company Number: US-VERTEX PHARMACEUTICALS-2020-012692

PATIENT
  Sex: Male
  Weight: 78 kg

DRUGS (3)
  1. CAYSTON [Concomitant]
     Active Substance: AZTREONAM
  2. TRIKAFTA [Suspect]
     Active Substance: ELEXACAFTOR\IVACAFTOR\TEZACAFTOR
     Indication: CYSTIC FIBROSIS
     Dosage: 2 TABS(100 MG ELEXACAFTOR/ 50 MG TEZACAFTOR/ 75 MG IVACAFTOR) AM,1 TAB(150MG IVACAFTOR) PM
     Route: 048
     Dates: start: 20200526
  3. ZITHROMAX [Concomitant]
     Active Substance: AZITHROMYCIN DIHYDRATE

REACTIONS (5)
  - Insomnia [Not Recovered/Not Resolved]
  - Constipation [Recovering/Resolving]
  - Pain in extremity [Recovering/Resolving]
  - Peripheral swelling [Recovering/Resolving]
  - Blood glucose increased [Unknown]

NARRATIVE: CASE EVENT DATE: 2020
